FAERS Safety Report 20209184 (Version 1)
Quarter: 2021Q4

REPORT INFORMATION
  Report Type: Spontaneous
  Country: CO (occurrence: CO)
  Receive Date: 20211220
  Receipt Date: 20211220
  Transmission Date: 20220303
  Serious: No
  Sender: FDA-Public Use
  Company Number: CO-PFIZER INC-2020451035

PATIENT
  Age: 12 Year
  Sex: Male

DRUGS (2)
  1. GENOTROPIN [Suspect]
     Active Substance: SOMATROPIN
     Indication: Body height below normal
     Dosage: 1.2 MG, DAILY (EVERY NIGHT)
     Route: 058
     Dates: start: 20190410
  2. GENOTROPIN [Suspect]
     Active Substance: SOMATROPIN
     Dosage: 1 MG 6 DAYS/WEEK (FROM MONDAY TO SATURDAY AND REST ON SUNDAYS)
     Dates: end: 202011

REACTIONS (3)
  - Drug dose omission by device [Unknown]
  - Device information output issue [Unknown]
  - Device failure [Unknown]

NARRATIVE: CASE EVENT DATE: 20201101
